FAERS Safety Report 6595128-4 (Version None)
Quarter: 2010Q1

REPORT INFORMATION
  Report Type: 
  Country: None (occurrence: None)
  Receive Date: 20100212
  Receipt Date: 20100202
  Transmission Date: 20100710
  Serious: Yes (Hospitalization)
  Sender: FDA-Public Use
  Company Number: TUK2009A00101

PATIENT
  Age: 76 Year
  Sex: Female

DRUGS (6)
  1. ACTOS [Suspect]
     Indication: DIABETES MELLITUS
     Dosage: 30 MG ORAL
     Route: 048
     Dates: start: 20050701, end: 20090507
  2. LIPITOR [Suspect]
     Indication: BLOOD CHOLESTEROL INCREASED
     Dosage: 40 MG ORAL
     Route: 048
     Dates: end: 20090507
  3. AMLODIPINE [Concomitant]
  4. ASPIRIN [Concomitant]
  5. DOXAZOSIN MESYLATE [Concomitant]
  6. FUROSEMIDE [Concomitant]

REACTIONS (2)
  - JAUNDICE [None]
  - LIVER FUNCTION TEST ABNORMAL [None]
